FAERS Safety Report 13995512 (Version 1)
Quarter: 2017Q3

REPORT INFORMATION
  Report Type: Spontaneous
  Country: CA (occurrence: CA)
  Receive Date: 20170921
  Receipt Date: 20170921
  Transmission Date: 20171128
  Serious: Yes (Hospitalization)
  Sender: FDA-Public Use
  Company Number: CA-AUROBINDO-AUR-APL-2017-40501

PATIENT
  Age: 16 Year
  Sex: Female

DRUGS (4)
  1. OLANZAPINE. [Suspect]
     Active Substance: OLANZAPINE
     Indication: COGNITIVE DISORDER
  2. OLANZAPINE. [Suspect]
     Active Substance: OLANZAPINE
  3. OLANZAPINE. [Suspect]
     Active Substance: OLANZAPINE
     Indication: UNDERWEIGHT
  4. OLANZAPINE. [Suspect]
     Active Substance: OLANZAPINE

REACTIONS (1)
  - Atrioventricular block first degree [Recovering/Resolving]
